FAERS Safety Report 11557606 (Version 4)
Quarter: 2016Q1

REPORT INFORMATION
  Report Type: Spontaneous
  Country: JP (occurrence: JP)
  Receive Date: 20150926
  Receipt Date: 20160322
  Transmission Date: 20160525
  Serious: Yes (Other)
  Sender: FDA-Public Use
  Company Number: PHJP2015JP016165

PATIENT
  Sex: Female

DRUGS (2)
  1. ZOMETA [Suspect]
     Active Substance: ZOLEDRONIC ACID
     Indication: PLASMA CELL MYELOMA
     Dosage: UNK
     Route: 041
  2. ALKERAN [Concomitant]
     Active Substance: MELPHALAN
     Indication: PRODUCT USED FOR UNKNOWN INDICATION
     Route: 065

REACTIONS (2)
  - Osteonecrosis of jaw [Recovered/Resolved]
  - Exposed bone in jaw [Unknown]
